FAERS Safety Report 14589948 (Version 1)
Quarter: 2018Q1

REPORT INFORMATION
  Report Type: Spontaneous
  Country: BE (occurrence: BE)
  Receive Date: 20180302
  Receipt Date: 20180302
  Transmission Date: 20180509
  Serious: Yes (Hospitalization)
  Sender: FDA-Public Use
  Company Number: BE-ROCHE-2081211

PATIENT
  Age: 95 Year
  Sex: Female

DRUGS (2)
  1. LUCENTIS [Suspect]
     Active Substance: RANIBIZUMAB
     Indication: PRODUCT USED FOR UNKNOWN INDICATION
     Dosage: FIRST INJECTION
     Route: 065
     Dates: start: 201710
  2. LUCENTIS [Suspect]
     Active Substance: RANIBIZUMAB
     Dosage: SECOND INJECTION
     Route: 065
     Dates: start: 201711

REACTIONS (2)
  - Hemiparesis [Recovered/Resolved]
  - Cerebrovascular accident [Recovered/Resolved]

NARRATIVE: CASE EVENT DATE: 201712
